FAERS Safety Report 6094687-8 (Version None)
Quarter: 2009Q1

REPORT INFORMATION
  Report Type: 
  Country: None (occurrence: None)
  Receive Date: 20090226
  Receipt Date: 20090217
  Transmission Date: 20090719
  Serious: Yes (Hospitalization)
  Sender: FDA-Public Use
  Company Number: US-MERCK-0802USA01251

PATIENT
  Age: 50 Year
  Sex: Male

DRUGS (5)
  1. ISENTRESS [Suspect]
     Route: 048
     Dates: start: 20070101, end: 20070801
  2. TRUVADA [Suspect]
     Route: 065
     Dates: start: 20070101, end: 20070801
  3. RITONAVIR [Suspect]
     Route: 065
     Dates: start: 20070101, end: 20070801
  4. APTIVUS [Suspect]
     Route: 065
     Dates: end: 20070801
  5. RITONAVIR [Concomitant]
     Route: 065
     Dates: start: 20070101, end: 20070801

REACTIONS (3)
  - BLOOD BILIRUBIN INCREASED [None]
  - HEPATIC STEATOSIS [None]
  - JAUNDICE [None]
